FAERS Safety Report 9175232 (Version 1)
Quarter: 2013Q1

REPORT INFORMATION
  Report Type: Spontaneous
  Country: US (occurrence: US)
  Receive Date: 20130320
  Receipt Date: 20130320
  Transmission Date: 20140127
  Serious: Yes (Death, Other)
  Sender: FDA-Public Use
  Company Number: US-PFIZER INC-2013084727

PATIENT
  Sex: 0

DRUGS (10)
  1. ZOLOFT [Suspect]
     Dosage: UNK
     Route: 064
     Dates: start: 200709, end: 200807
  2. SERTRALINE HCL [Suspect]
     Dosage: UNK
     Route: 064
     Dates: start: 200709, end: 200807
  3. CLONAZEPAM [Concomitant]
     Dosage: UNK
     Route: 064
  4. CLOMIPRAMINE [Concomitant]
     Dosage: UNK
     Route: 064
  5. CEPHALEXIN [Concomitant]
     Dosage: UNK
     Route: 064
  6. NATAL CARE VITAMINS [Concomitant]
     Dosage: UNK
     Route: 064
  7. NITROFURANTOIN-MACRO [Concomitant]
     Dosage: UNK
     Route: 064
  8. PROCHLORPERAZINE [Concomitant]
     Dosage: UNK
     Route: 064
  9. OXYCODONE [Concomitant]
     Dosage: UNK
     Route: 064
  10. HYDROCODONE [Concomitant]
     Dosage: UNK
     Route: 064

REACTIONS (2)
  - Maternal exposure during pregnancy [Fatal]
  - Tachycardia foetal [Fatal]
